FAERS Safety Report 10356088 (Version 4)
Quarter: 2015Q4

REPORT INFORMATION
  Report Type: Report from Study
  Country: US (occurrence: US)
  Receive Date: 20140801
  Receipt Date: 20151023
  Transmission Date: 20160304
  Serious: Yes (Hospitalization, Other)
  Sender: FDA-Public Use
  Company Number: US-BIOGENIDEC-2014BI074591

PATIENT
  Age: 59 Year
  Sex: Female

DRUGS (2)
  1. TECFIDERA [Suspect]
     Active Substance: DIMETHYL FUMARATE
     Indication: MULTIPLE SCLEROSIS
     Route: 048
     Dates: start: 20150902
  2. TECFIDERA [Suspect]
     Active Substance: DIMETHYL FUMARATE
     Indication: MULTIPLE SCLEROSIS
     Route: 048
     Dates: start: 201305, end: 201503

REACTIONS (12)
  - Intestinal adhesion lysis [Unknown]
  - Intestinal resection [Recovered/Resolved]
  - Diarrhoea [Not Recovered/Not Resolved]
  - Gastrectomy [Recovered/Resolved]
  - Pyrexia [Unknown]
  - Migraine [Unknown]
  - Vomiting [Not Recovered/Not Resolved]
  - Dysphagia [Unknown]
  - Pain [Unknown]
  - Nausea [Not Recovered/Not Resolved]
  - Malaise [Unknown]
  - Flushing [Not Recovered/Not Resolved]

NARRATIVE: CASE EVENT DATE: 20140506
